FAERS Safety Report 6122265-0 (Version None)
Quarter: 2009Q1

REPORT INFORMATION
  Report Type: 
  Country: None (occurrence: None)
  Receive Date: 20090316
  Receipt Date: 20090226
  Transmission Date: 20090719
  Serious: Yes (Other)
  Sender: FDA-Public Use
  Company Number: DSA_33331_2009

PATIENT
  Sex: Female

DRUGS (4)
  1. VASOCARDOL (VASOCARDOL - DILTIAZEM HYDROCHLORIDE) (NOT SPECIFIED) [Suspect]
     Indication: ATRIAL FIBRILLATION
     Dosage: (60 MG BID ORAL), (60 MG TID ORAL)
     Route: 048
     Dates: start: 20080101
  2. VASOCARDOL (VASOCARDOL - DILTIAZEM HYDROCHLORIDE) (NOT SPECIFIED) [Suspect]
     Indication: DRUG USE FOR UNKNOWN INDICATION
     Dosage: (60 MG BID ORAL), (60 MG TID ORAL)
     Route: 048
     Dates: start: 20080101
  3. VASOCARDOL (VASOCARDOL - DILTIAZEM HYDROCHLORIDE) (NOT SPECIFIED) [Suspect]
     Indication: ATRIAL FIBRILLATION
     Dosage: (60 MG BID ORAL), (60 MG TID ORAL)
     Route: 048
     Dates: start: 20090201
  4. VASOCARDOL (VASOCARDOL - DILTIAZEM HYDROCHLORIDE) (NOT SPECIFIED) [Suspect]
     Indication: DRUG USE FOR UNKNOWN INDICATION
     Dosage: (60 MG BID ORAL), (60 MG TID ORAL)
     Route: 048
     Dates: start: 20090201

REACTIONS (2)
  - ATRIAL FIBRILLATION [None]
  - POLLAKIURIA [None]
